FAERS Safety Report 9422932 (Version 1)
Quarter: 2013Q3

REPORT INFORMATION
  Report Type: Spontaneous
  Country: DK (occurrence: DK)
  Receive Date: 20130726
  Receipt Date: 20130726
  Transmission Date: 20140515
  Serious: Yes (Hospitalization)
  Sender: FDA-Public Use
  Company Number: DK-ACTAVIS-2013-13066

PATIENT
  Age: 43 Year
  Sex: Female

DRUGS (2)
  1. EPIRUBICIN HYDROCHLORIDE (UNKNOWN) [Suspect]
     Indication: BREAST CANCER
     Dosage: 170 MG, UNKNOWN
     Route: 042
     Dates: start: 20130318, end: 20130502
  2. SENDOXAN [Suspect]
     Indication: BREAST CANCER
     Dosage: 1.11 MG, UNKNOWN
     Route: 042
     Dates: start: 20130318, end: 20130502

REACTIONS (5)
  - Hypersensitivity [Unknown]
  - Dyspnoea [Unknown]
  - Nausea [Unknown]
  - Fatigue [Unknown]
  - Dyspnoea [Unknown]
